FAERS Safety Report 8501962-3 (Version None)
Quarter: 2012Q3

REPORT INFORMATION
  Report Type: 
  Country: None (occurrence: None)
  Receive Date: 20120711
  Receipt Date: 20120618
  Transmission Date: 20120928
  Serious: Yes (Hospitalization)
  Sender: FDA-Public Use
  Company Number: US-JNJFOC-20120520844

PATIENT
  Sex: Male
  Weight: 89.36 kg

DRUGS (1)
  1. INFLIXIMAB, RECOMBINANT [Suspect]
     Indication: PSORIASIS
     Route: 042
     Dates: start: 20080401

REACTIONS (3)
  - VOLVULUS [None]
  - POSTOPERATIVE WOUND INFECTION [None]
  - STREPTOCOCCAL INFECTION [None]
